FAERS Safety Report 6443405-X (Version None)
Quarter: 2009Q4

REPORT INFORMATION
  Report Type: 
  Country: None (occurrence: None)
  Receive Date: 20091117
  Receipt Date: 20091106
  Transmission Date: 20100525
  Serious: Yes (Hospitalization)
  Sender: FDA-Public Use
  Company Number: US-PFIZER INC-2009279443

PATIENT
  Sex: Male
  Weight: 79.365 kg

DRUGS (22)
  1. CHANTIX [Suspect]
     Indication: SMOKING CESSATION THERAPY
     Dosage: 0.5 MG, 1X/DAY
     Dates: start: 20090928
  2. EPLERENONE [Concomitant]
  3. AMIODARONE [Concomitant]
  4. COREG [Concomitant]
     Dosage: UNK
  5. ADDERALL 10 [Concomitant]
     Dosage: UNK
  6. CYMBALTA [Concomitant]
     Dosage: UNK
  7. KLONOPIN [Concomitant]
     Indication: HEADACHE
     Dosage: FREQUENCY: AS NEEDED,
  8. VALSARTAN [Concomitant]
     Dosage: UNK
  9. REMERON [Concomitant]
     Dosage: UNK
  10. ROBAXIN [Concomitant]
     Indication: HEADACHE
     Dosage: FREQUENCY: AS NEEDED,
  11. SYNTHROID [Concomitant]
     Dosage: UNK
  12. ACIPHEX [Concomitant]
     Dosage: UNK
  13. LASIX [Concomitant]
     Dosage: UNK
  14. PREDNISONE [Concomitant]
     Dosage: UNK
  15. POTASSIUM CHLORIDE [Concomitant]
     Dosage: UNK
  16. WARFARIN [Concomitant]
     Dosage: UNK
  17. ZETIA [Concomitant]
     Dosage: UNK
  18. VITAMIN TAB [Concomitant]
     Dosage: UNK
  19. VITAMIN B-12 [Concomitant]
     Dosage: UNK
  20. IRON SULFATETHIAMIN COMPOUND TAB [Concomitant]
     Dosage: UNK
  21. ACETYLSALICYLIC ACID [Concomitant]
     Dosage: UNK
  22. VITAMIN D3 [Concomitant]
     Dosage: UNK

REACTIONS (3)
  - INSOMNIA [None]
  - RESTLESS LEGS SYNDROME [None]
  - SURGERY [None]
